FAERS Safety Report 5309401-0 (Version None)
Quarter: 2007Q2

REPORT INFORMATION
  Report Type: 
  Country: None (occurrence: None)
  Receive Date: 20070423
  Receipt Date: 20070409
  Transmission Date: 20071010
  Serious: Yes (Hospitalization)
  Sender: FDA-Public Use
  Company Number: CERZ-11240

PATIENT
  Age: 5 Year
  Sex: Male

DRUGS (11)
  1. CEREZYME [Suspect]
     Indication: GAUCHER'S DISEASE
     Dosage: 800 U NITS Q2WKS IV
     Route: 042
     Dates: start: 20020501
  2. CEREZYME [Suspect]
     Indication: GAUCHER'S DISEASE
     Dates: start: 20011116
  3. MEQUITAZINE [Concomitant]
  4. TIPEPIDINE HIBENZATE [Concomitant]
  5. CARBOCISTEINE [Concomitant]
  6. MIDAZOLAM HCL [Concomitant]
  7. VALPROATE SODIUM [Concomitant]
  8. ZONISAMIDE [Concomitant]
  9. CLONAZEPAM [Concomitant]
  10. DANTROLENE SODIUM [Concomitant]
  11. PHENYTOIN [Concomitant]

REACTIONS (2)
  - ACUTE RESPIRATORY FAILURE [None]
  - PNEUMONIA [None]
